FAERS Safety Report 9468355 (Version 2)
Quarter: 2013Q3

REPORT INFORMATION
  Report Type: Spontaneous
  Country: US (occurrence: US)
  Receive Date: 20130821
  Receipt Date: 20130903
  Transmission Date: 20140515
  Serious: No
  Sender: FDA-Public Use
  Company Number: US-PFIZER INC-2013240343

PATIENT
  Age: 65 Year
  Sex: Female
  Weight: 86.17 kg

DRUGS (4)
  1. XELJANZ [Suspect]
     Indication: RHEUMATOID ARTHRITIS
     Dosage: 5 MG, 2X/DAY
     Route: 048
     Dates: start: 20130705, end: 20130813
  2. ENALAPRIL [Concomitant]
     Indication: HYPERTENSION
     Dosage: UNK
  3. POTASSIUM CHLORIDE [Concomitant]
     Indication: HYPERTENSION
     Dosage: UNK
  4. ADVAIR [Concomitant]
     Indication: ASTHMA
     Dosage: UNK

REACTIONS (10)
  - Pyrexia [Recovering/Resolving]
  - Dyspnoea [Recovering/Resolving]
  - Chills [Recovering/Resolving]
  - Nausea [Unknown]
  - Dysphagia [Recovered/Resolved]
  - Hyperhidrosis [Recovering/Resolving]
  - Tremor [Recovering/Resolving]
  - Gallbladder disorder [Recovering/Resolving]
  - Swelling [Recovering/Resolving]
  - Micturition urgency [Recovering/Resolving]
